FAERS Safety Report 13176496 (Version 1)
Quarter: 2017Q1

REPORT INFORMATION
  Report Type: Spontaneous
  Country: CZ (occurrence: CZ)
  Receive Date: 20170201
  Receipt Date: 20170201
  Transmission Date: 20170428
  Serious: Yes (Hospitalization, Other)
  Sender: FDA-Public Use
  Company Number: PHHY2017CZ010447

PATIENT
  Age: 25 Year
  Sex: Male
  Weight: 80 kg

DRUGS (1)
  1. AMOKSIKLAV [Suspect]
     Active Substance: AMOXICILLIN\CLAVULANATE POTASSIUM
     Indication: FURUNCLE
     Dosage: 875 MG, TID
     Route: 048
     Dates: start: 20160127, end: 20170103

REACTIONS (2)
  - Meningitis aseptic [Recovered/Resolved]
  - Headache [Recovered/Resolved]

NARRATIVE: CASE EVENT DATE: 20170109
